FAERS Safety Report 19501500 (Version 1)
Quarter: 2021Q3

REPORT INFORMATION
  Report Type: Spontaneous
  Country: US (occurrence: US)
  Receive Date: 20210707
  Receipt Date: 20210707
  Transmission Date: 20211014
  Serious: Yes (Other)
  Sender: FDA-Public Use
  Company Number: US-BAYER-2021-167350

PATIENT
  Age: 71 Year
  Sex: Female

DRUGS (9)
  1. BACTRIM [Suspect]
     Active Substance: SULFAMETHOXAZOLE\TRIMETHOPRIM
  2. PFIZER?BIONTECH COVID?19 VACCINE [Suspect]
     Active Substance: TOZINAMERAN
     Indication: COVID-19 IMMUNISATION
     Dosage: 1 DF, ONCE
     Route: 030
  3. HYDROXYCHLOROQUINE [Suspect]
     Active Substance: HYDROXYCHLOROQUINE
  4. HUMIRA [Suspect]
     Active Substance: ADALIMUMAB
     Indication: RHEUMATOID ARTHRITIS
     Dosage: 40 MG, Q2WK
     Route: 058
     Dates: start: 202010
  5. CECLOR [Suspect]
     Active Substance: CEFACLOR
  6. PREDNISONE. [Suspect]
     Active Substance: PREDNISONE
  7. CIPRO [Suspect]
     Active Substance: CIPROFLOXACIN HYDROCHLORIDE
  8. HUMIRA [Suspect]
     Active Substance: ADALIMUMAB
     Indication: RHEUMATOID ARTHRITIS
     Dosage: UNK
     Route: 058
  9. VIOXX [Suspect]
     Active Substance: ROFECOXIB

REACTIONS (17)
  - Allergic cough [None]
  - Urticaria [None]
  - Mycotic allergy [None]
  - Respiratory tract congestion [None]
  - Hypersensitivity [None]
  - Illness [None]
  - Eye pruritus [None]
  - Dermatitis contact [None]
  - Food allergy [None]
  - Herpes zoster [None]
  - Psoriasis [None]
  - Pruritus allergic [None]
  - Immune system disorder [None]
  - Environmental exposure [None]
  - Skin exfoliation [None]
  - Stevens-Johnson syndrome [None]
  - Drug hypersensitivity [None]

NARRATIVE: CASE EVENT DATE: 201908
